FAERS Safety Report 23632112 (Version 2)
Quarter: 2025Q1

REPORT INFORMATION
  Report Type: Spontaneous
  Country: US (occurrence: US)
  Receive Date: 20240314
  Receipt Date: 20250301
  Transmission Date: 20250408
  Serious: No
  Sender: SANOFI AVENTIS
  Company Number: US-SA-SAC20240311000363

PATIENT
  Age: 48 Year
  Sex: Female
  Weight: 101 kg

DRUGS (22)
  1. DUPIXENT [Suspect]
     Active Substance: DUPILUMAB
     Indication: Asthma
     Dosage: 300 MG, QOW
     Route: 058
  2. ZYRTEC [Concomitant]
     Active Substance: CETIRIZINE HYDROCHLORIDE
  3. ONDANSETRON HYDROCHLORIDE [Concomitant]
     Active Substance: ONDANSETRON HYDROCHLORIDE
  4. ALBUTEROL\IPRATROPIUM [Concomitant]
     Active Substance: ALBUTEROL\IPRATROPIUM
  5. NITRO TIME [Concomitant]
  6. CITALOPRAM HYDROBROMIDE [Concomitant]
     Active Substance: CITALOPRAM HYDROBROMIDE
  7. ROSUVASTATIN CALCIUM [Concomitant]
     Active Substance: ROSUVASTATIN CALCIUM
  8. TRAZODONE HCL [Concomitant]
     Active Substance: TRAZODONE HYDROCHLORIDE
  9. LANTUS [Concomitant]
     Active Substance: INSULIN GLARGINE
  10. SINGULAIR [Concomitant]
     Active Substance: MONTELUKAST SODIUM
  11. DICYCLOMINE HYDROCHLORIDE [Concomitant]
     Active Substance: DICYCLOMINE HYDROCHLORIDE
  12. ASPIRIN [Concomitant]
     Active Substance: ASPIRIN
  13. GABAPENTIN [Concomitant]
     Active Substance: GABAPENTIN
  14. INCRUSE ELLIPTA [Concomitant]
     Active Substance: UMECLIDINIUM BROMIDE
  15. AMLODIPINE BESYLATE [Concomitant]
     Active Substance: AMLODIPINE BESYLATE
  16. IBANDRONATE SODIUM [Concomitant]
     Active Substance: IBANDRONATE SODIUM
  17. FLUTICASONE FUROATE\SALMETEROL XINAFOATE [Concomitant]
     Active Substance: FLUTICASONE FUROATE\SALMETEROL XINAFOATE
  18. METOPROLOL SUCCINATE [Concomitant]
     Active Substance: METOPROLOL SUCCINATE
  19. PANTOPRAZOLE SODIUM [Concomitant]
     Active Substance: PANTOPRAZOLE SODIUM
  20. BACLOFEN [Concomitant]
     Active Substance: BACLOFEN
  21. ALBUTEROL SULFATE [Concomitant]
     Active Substance: ALBUTEROL SULFATE
  22. ALBUTEROL SULFATE [Concomitant]
     Active Substance: ALBUTEROL SULFATE

REACTIONS (9)
  - Loss of personal independence in daily activities [Not Recovered/Not Resolved]
  - Wheezing [Not Recovered/Not Resolved]
  - Cough [Not Recovered/Not Resolved]
  - Illness [Recovered/Resolved]
  - Dyspnoea [Recovered/Resolved]
  - Nasal congestion [Recovered/Resolved]
  - Eye swelling [Recovered/Resolved]
  - Pruritus [Recovered/Resolved]
  - Hypersensitivity [Recovered/Resolved]

NARRATIVE: CASE EVENT DATE: 20240301
